FAERS Safety Report 9234822 (Version 1)
Quarter: 2013Q2

REPORT INFORMATION
  Report Type: Spontaneous
  Country: FR (occurrence: FR)
  Receive Date: 20130416
  Receipt Date: 20130416
  Transmission Date: 20140414
  Serious: Yes (Other)
  Sender: FDA-Public Use
  Company Number: FR-GILEAD-2013-0073580

PATIENT
  Age: 45 Year
  Sex: Male

DRUGS (7)
  1. TRUVADA [Suspect]
     Indication: HIV INFECTION
     Dosage: 1 DF, QD
     Route: 048
     Dates: start: 20110218, end: 20110303
  2. TRUVADA [Suspect]
     Dosage: 1 DF, QD
     Route: 048
     Dates: start: 20120730, end: 20120830
  3. ISENTRESS [Suspect]
     Indication: HIV INFECTION
     Dosage: 400 MG, BID
     Route: 048
     Dates: start: 20110218, end: 20110303
  4. ISENTRESS [Suspect]
     Dosage: 400 MG, BID
     Route: 048
     Dates: start: 20120730, end: 20120830
  5. APTIVUS [Concomitant]
     Indication: HIV INFECTION
  6. KIVEXA [Concomitant]
     Indication: HIV INFECTION
  7. NORVIR [Concomitant]
     Indication: HIV INFECTION

REACTIONS (3)
  - Glare [Recovered/Resolved]
  - Vertigo [Recovered/Resolved]
  - Headache [Recovered/Resolved]
